FAERS Safety Report 4511791-3 (Version None)
Quarter: 2004Q4

REPORT INFORMATION
  Report Type: 
  Country: None (occurrence: None)
  Receive Date: 20041129
  Receipt Date: 20040709
  Transmission Date: 20050328
  Serious: Yes (Hospitalization)
  Sender: FDA-Public Use
  Company Number: PHNU2004DE02443

PATIENT
  Age: 37 Year
  Sex: Female

DRUGS (2)
  1. CAFERGOT [Suspect]
     Indication: HEADACHE
     Dosage: UNK
     Route: 065
     Dates: start: 19940101, end: 20040501
  2. CAFERGOT [Suspect]
     Dosage: 1 DF, ONCE/SINGLE
     Route: 054
     Dates: start: 20040704, end: 20040704

REACTIONS (6)
  - BALANCE DISORDER [None]
  - BRAIN SCAN ABNORMAL [None]
  - HEADACHE [None]
  - HYPOAESTHESIA [None]
  - NERVOUS SYSTEM DISORDER [None]
  - VASCULITIS [None]
